FAERS Safety Report 8509575-4 (Version None)
Quarter: 2012Q3

REPORT INFORMATION
  Report Type: 
  Country: None (occurrence: None)
  Receive Date: 20120703
  Receipt Date: 20120620
  Transmission Date: 20120928
  Serious: Yes (Death)
  Sender: FDA-Public Use
  Company Number: ADR-2012-01106

PATIENT
  Sex: Male
  Weight: 14.9687 kg

DRUGS (2)
  1. LIORESAL [Suspect]
     Indication: MUSCLE SPASTICITY
     Dosage: 225 MCG/DAY
  2. LIORESAL [Suspect]
     Indication: BRAIN INJURY
     Dosage: 225 MCG/DAY

REACTIONS (25)
  - UNRESPONSIVE TO STIMULI [None]
  - BACTERIAL INFECTION [None]
  - HYPONATRAEMIA [None]
  - HYDROCEPHALUS [None]
  - SUBDURAL HAEMATOMA [None]
  - SUBARACHNOID HAEMORRHAGE [None]
  - KELOID SCAR [None]
  - HYPOXIC-ISCHAEMIC ENCEPHALOPATHY [None]
  - NEAR DROWNING [None]
  - BLOOD GLUCOSE DECREASED [None]
  - STAPHYLOCOCCUS TEST POSITIVE [None]
  - ACCIDENTAL DEATH [None]
  - BLOOD UREA INCREASED [None]
  - HYPERPYREXIA [None]
  - BLOOD POTASSIUM INCREASED [None]
  - BRAIN INJURY [None]
  - PULMONARY OEDEMA [None]
  - CEREBRAL ATROPHY [None]
  - DEHYDRATION [None]
  - HYPERCHLORAEMIA [None]
  - PNEUMONIA BACTERIAL [None]
  - DRUG SCREEN POSITIVE [None]
  - SCAR [None]
  - PNEUMONIA [None]
  - HAEMOPHILUS SEPSIS [None]
